FAERS Safety Report 5893338-2 (Version None)
Quarter: 2008Q3

REPORT INFORMATION
  Report Type: 
  Country: None (occurrence: None)
  Receive Date: 20080923
  Receipt Date: 20080916
  Transmission Date: 20090109
  Serious: Yes (Hospitalization)
  Sender: FDA-Public Use
  Company Number: US-ASTRAZENECA-2008UW14982

PATIENT
  Age: 65 Year
  Sex: Female
  Weight: 45.4 kg

DRUGS (18)
  1. SEROQUEL [Suspect]
     Indication: BIPOLAR DISORDER
     Route: 048
     Dates: start: 20070820
  2. SEROQUEL [Suspect]
     Indication: SCHIZOPHRENIA, PARANOID TYPE
     Route: 048
     Dates: start: 20070820
  3. SEROQUEL [Suspect]
     Route: 048
  4. SEROQUEL [Suspect]
     Route: 048
  5. VYTORIN [Concomitant]
  6. FOSAMAX [Concomitant]
  7. ESTRACE [Concomitant]
  8. SYNTHROID [Concomitant]
  9. WELLBUTRIN SR [Concomitant]
     Route: 048
     Dates: start: 20070917
  10. CALCIUM GLUCONATE [Concomitant]
  11. ZINC [Concomitant]
  12. LAMICTAL [Concomitant]
     Dates: end: 20071008
  13. PROLIXIN [Concomitant]
     Route: 048
     Dates: start: 19981012
  14. PROLIXIN [Concomitant]
     Dosage: 3 MG IN THE AM AND 5MG AT HS
     Route: 048
     Dates: start: 19990322
  15. PROLIXIN [Concomitant]
     Route: 048
     Dates: start: 20001102
  16. ZYPREXA [Concomitant]
     Dates: end: 19981012
  17. TEGRETOL [Concomitant]
     Dates: end: 19990111
  18. COGENTIN [Concomitant]
     Dates: start: 19990625, end: 19990827

REACTIONS (3)
  - FEELING ABNORMAL [None]
  - INCOHERENT [None]
  - SOMNOLENCE [None]
